FAERS Safety Report 7986284-1 (Version None)
Quarter: 2011Q4

REPORT INFORMATION
  Report Type: 
  Country: None (occurrence: None)
  Receive Date: 20111216
  Receipt Date: 20110124
  Transmission Date: 20120403
  Serious: No
  Sender: FDA-Public Use
  Company Number: US-BRISTOL-MYERS SQUIBB COMPANY-15507387

PATIENT
  Age: 50 Year
  Sex: Male

DRUGS (2)
  1. ABILIFY [Suspect]
     Indication: DEPRESSION
     Dosage: RECEIVED FOR 6 MONTH
  2. CYMBALTA [Concomitant]

REACTIONS (2)
  - AKATHISIA [None]
  - PSYCHOMOTOR HYPERACTIVITY [None]
